FAERS Safety Report 7465693-3 (Version None)
Quarter: 2011Q2

REPORT INFORMATION
  Report Type: 
  Country: None (occurrence: None)
  Receive Date: 20110509
  Receipt Date: 20110428
  Transmission Date: 20111010
  Serious: Yes (Hospitalization)
  Sender: FDA-Public Use
  Company Number: B0711125A

PATIENT
  Sex: Male

DRUGS (18)
  1. SEFTAC [Concomitant]
     Dosage: 450MG PER DAY
     Route: 048
  2. PLATIBIT [Concomitant]
     Dosage: .25MCG PER DAY
     Route: 048
  3. ALKERAN [Suspect]
     Indication: MULTIPLE MYELOMA
     Dosage: 12MG PER DAY
     Route: 048
     Dates: start: 20110315, end: 20110318
  4. ANGINAL [Concomitant]
     Dosage: 25MG PER DAY
     Route: 048
  5. DIOVAN [Concomitant]
     Dosage: 80MG PER DAY
     Route: 048
  6. SODIUM BICARBONATE [Concomitant]
     Dosage: 2G PER DAY
  7. HEPARIN [Concomitant]
     Indication: ANTICOAGULANT THERAPY
     Dates: start: 20110323
  8. PREDONINE [Concomitant]
     Dosage: 40MG PER DAY
     Route: 048
     Dates: start: 20110315, end: 20110318
  9. ARGAMATE [Concomitant]
     Dosage: 25G PER DAY
     Route: 048
  10. ALOSENN [Concomitant]
     Indication: CONSTIPATION
     Dosage: .5MG PER DAY
     Route: 048
  11. AMLODIPINE BESILATE [Concomitant]
     Dosage: 20MG PER DAY
     Route: 048
  12. NAFAMOSTAT MESILATE [Concomitant]
     Indication: ANTICOAGULANT THERAPY
     Dates: start: 20110323
  13. PREDONINE [Concomitant]
     Dosage: 10MG PER DAY
     Route: 048
     Dates: start: 20110319, end: 20110320
  14. PLATIBIT [Concomitant]
     Dosage: .25MG PER DAY
     Route: 048
  15. ALLOPURINOL [Concomitant]
     Dosage: 50MG PER DAY
     Route: 048
  16. PREDONINE [Concomitant]
     Dosage: 5MG PER DAY
     Route: 048
     Dates: start: 20110321, end: 20110325
  17. ROXATIDINE ACETATE HCL [Concomitant]
     Dosage: 300MG PER DAY
     Route: 048
  18. SENNARIDE [Concomitant]
     Indication: CONSTIPATION
     Dosage: 24MG PER DAY
     Route: 048
     Dates: start: 20110327

REACTIONS (13)
  - MYELODYSPLASTIC SYNDROME [None]
  - RENAL FAILURE CHRONIC [None]
  - HAEMOGLOBIN DECREASED [None]
  - BONE MARROW FAILURE [None]
  - THROMBOCYTOPENIA [None]
  - RENAL IMPAIRMENT [None]
  - HAEMATOCRIT DECREASED [None]
  - NEUTROPHIL PERCENTAGE INCREASED [None]
  - RED BLOOD CELL COUNT DECREASED [None]
  - LYMPHOCYTE PERCENTAGE DECREASED [None]
  - PLATELET COUNT DECREASED [None]
  - WHITE BLOOD CELL COUNT DECREASED [None]
  - ANAEMIA [None]
